FAERS Safety Report 5955402-9 (Version None)
Quarter: 2008Q4

REPORT INFORMATION
  Report Type: 
  Country: None (occurrence: None)
  Receive Date: 20081113
  Receipt Date: 20081103
  Transmission Date: 20090506
  Serious: Yes (Other)
  Sender: FDA-Public Use
  Company Number: GXKR2008ES10622

PATIENT
  Age: 56 Year
  Sex: Female

DRUGS (7)
  1. METFORMIN SANDOZ (NGX)(METFORMIN) FILM-COATED TABLET, 850MG [Suspect]
     Indication: DIABETES MELLITUS
     Dosage: 850 MG, QD, ORAL
     Route: 048
     Dates: start: 20080716, end: 20080719
  2. AMLODIPINE [Concomitant]
  3. COAPROVEL (HYDROCHLOROTHIAZIDE,  IRBESARTAN) [Concomitant]
  4. TRAMADOL HCL [Concomitant]
  5. GABAPENTIN [Concomitant]
  6. OMEPRAZOLE [Concomitant]
  7. PREVENCOR (ATORVASTATIN CALCIUM) [Concomitant]

REACTIONS (4)
  - AGITATION [None]
  - ANXIETY [None]
  - INSOMNIA [None]
  - PALPITATIONS [None]
